FAERS Safety Report 22372802 (Version 1)
Quarter: 2023Q2

REPORT INFORMATION
  Report Type: Spontaneous
  Country: CN (occurrence: CN)
  Receive Date: 20230526
  Receipt Date: 20230526
  Transmission Date: 20230721
  Serious: Yes (Other)
  Sender: FDA-Public Use
  Company Number: CN-PFIZER INC-PV202300091402

PATIENT
  Age: 35 Year
  Sex: Female

DRUGS (2)
  1. CIBINQO [Suspect]
     Active Substance: ABROCITINIB
     Indication: Dermatitis atopic
     Dosage: 100 MG, 1X/DAY
     Route: 048
     Dates: start: 20230323
  2. CIBINQO [Suspect]
     Active Substance: ABROCITINIB
     Dosage: 100 MG, ALTERNATE DAY
     Route: 048
     Dates: start: 20230502

REACTIONS (5)
  - Urinary tract infection [Recovering/Resolving]
  - Vaginal infection [Recovering/Resolving]
  - Vision blurred [Recovering/Resolving]
  - Red blood cell sedimentation rate increased [Unknown]
  - Intentional product misuse [Unknown]

NARRATIVE: CASE EVENT DATE: 20230502
